FAERS Safety Report 12928000 (Version 1)
Quarter: 2016Q4

REPORT INFORMATION
  Report Type: Spontaneous
  Country: US (occurrence: US)
  Receive Date: 20161110
  Receipt Date: 20161110
  Transmission Date: 20170207
  Serious: Yes (Disabling, Other)
  Sender: FDA-Public Use
  Company Number: None

PATIENT
  Age: 70 Year
  Sex: Female
  Weight: 70.76 kg

DRUGS (9)
  1. AMITRIPTILINE [Concomitant]
  2. ESTRADIOL TRANSDERMAL SYSTEM [Concomitant]
     Active Substance: ESTRADIOL
  3. AMOX/K [Concomitant]
  4. GENTAMICIN SULFATE OP [Concomitant]
  5. PROLIA [Suspect]
     Active Substance: DENOSUMAB
     Indication: OSTEOPOROSIS
     Dosage: 1 INJECTION EVERY SIX MONTHS
     Dates: end: 20161004
  6. OMEPRASOL [Concomitant]
  7. VITAMIN C [Concomitant]
     Active Substance: ASCORBIC ACID
  8. VITAMIN E [Concomitant]
     Active Substance: .ALPHA.-TOCOPHEROL
  9. CALCIUM [Concomitant]
     Active Substance: CALCIUM

REACTIONS (11)
  - Diarrhoea [None]
  - Pyrexia [None]
  - Cardiac disorder [None]
  - Bone pain [None]
  - Dyspnoea [None]
  - Pain [None]
  - Fatigue [None]
  - Infection [None]
  - Arthralgia [None]
  - Chest pain [None]
  - Asthenia [None]
